FAERS Safety Report 6718638-5 (Version None)
Quarter: 2010Q2

REPORT INFORMATION
  Report Type: 
  Country: None (occurrence: None)
  Receive Date: 20100505
  Receipt Date: 20100421
  Transmission Date: 20101027
  Serious: Yes (Hospitalization, Other)
  Sender: FDA-Public Use
  Company Number: 7002554

PATIENT
  Age: 30 Year
  Sex: Female

DRUGS (1)
  1. SEROPHENE [Suspect]
     Indication: AMENORRHOEA

REACTIONS (7)
  - DRUG EFFECT DECREASED [None]
  - ENDOMETRIAL CANCER STAGE I [None]
  - HYPERSENSITIVITY [None]
  - METASTASES TO LUNG [None]
  - METASTASES TO OVARY [None]
  - METASTASES TO PERITONEUM [None]
  - OESTROGEN RECEPTOR ASSAY POSITIVE [None]
